FAERS Safety Report 16594621 (Version 1)
Quarter: 2019Q3

REPORT INFORMATION
  Report Type: Spontaneous
  Country: FR (occurrence: FR)
  Receive Date: 20190718
  Receipt Date: 20190718
  Transmission Date: 20191004
  Serious: Yes (Other)
  Sender: FDA-Public Use
  Company Number: FR-009507513-1907FRA010270

PATIENT
  Age: 75 Year
  Sex: Female

DRUGS (7)
  1. AZANTAC [Suspect]
     Active Substance: RANITIDINE HYDROCHLORIDE
     Indication: ALLERGY PROPHYLAXIS
     Dosage: 50 MILLIGRAM, CYCLICAL
     Route: 042
     Dates: start: 20190605, end: 20190605
  2. DEXAMETHASONE MYLAN [Suspect]
     Active Substance: DEXAMETHASONE
     Indication: ALLERGY PROPHYLAXIS
     Dosage: 20 MILLIGRAM, CYCLICAL
     Route: 042
     Dates: start: 20190605, end: 20190605
  3. EMEND [Suspect]
     Active Substance: APREPITANT
     Indication: PROPHYLAXIS OF NAUSEA AND VOMITING
     Dosage: 80 MILLIGRAM, QD
     Route: 048
     Dates: start: 20190606, end: 20190607
  4. ONDANSETRON [Suspect]
     Active Substance: ONDANSETRON
     Indication: PROPHYLAXIS OF NAUSEA AND VOMITING
     Dosage: 16 MILLIGRAM, QD
     Route: 048
     Dates: start: 20190605, end: 20190605
  5. EMEND [Suspect]
     Active Substance: APREPITANT
     Indication: PROPHYLAXIS OF NAUSEA AND VOMITING
     Dosage: 125 MILLIGRAM, QD
     Route: 048
     Dates: start: 20190605, end: 20190605
  6. KABI PACLITAXEL [Suspect]
     Active Substance: PACLITAXEL
     Indication: ENDOMETRIAL CANCER
     Dosage: 301 MILLIGRAM, CYCLICAL
     Route: 042
     Dates: start: 20190605, end: 20190605
  7. POLARAMINE [Suspect]
     Active Substance: DEXCHLORPHENIRAMINE MALEATE
     Indication: ALLERGY PROPHYLAXIS
     Dosage: 5 MILLIGRAM, CYCLICAL
     Route: 042
     Dates: start: 20190605, end: 20190605

REACTIONS (2)
  - Hypersensitivity [Recovered/Resolved]
  - Back pain [Recovered/Resolved]

NARRATIVE: CASE EVENT DATE: 20190605
